FAERS Safety Report 26175557 (Version 1)
Quarter: 2025Q4

REPORT INFORMATION
  Report Type: Spontaneous
  Country: GB (occurrence: GB)
  Receive Date: 20251218
  Receipt Date: 20251218
  Transmission Date: 20260117
  Serious: Yes (Hospitalization, Other)
  Sender: SAMSUNG BIOEPIS
  Company Number: GB-SAMSUNG BIOEPIS-SB-2025-40495

PATIENT
  Age: 65 Year
  Sex: Male

DRUGS (1)
  1. INFLIXIMAB [Suspect]
     Active Substance: INFLIXIMAB
     Indication: Crohn^s disease
     Route: 058

REACTIONS (5)
  - Haemophagocytic lymphohistiocytosis [Recovered/Resolved]
  - Loss of consciousness [Recovered/Resolved]
  - Fall [Unknown]
  - Bradycardia [Unknown]
  - Product use issue [Unknown]

NARRATIVE: CASE EVENT DATE: 20250501
